FAERS Safety Report 21798809 (Version 1)
Quarter: 2022Q4

REPORT INFORMATION
  Report Type: Spontaneous
  Country: US (occurrence: None)
  Receive Date: 20221229
  Receipt Date: 20221229
  Transmission Date: 20230113
  Serious: No
  Sender: FDA-Public Use
  Company Number: None

PATIENT
  Age: 60 Year
  Sex: Male

DRUGS (1)
  1. TALTZ [Suspect]
     Active Substance: IXEKIZUMAB
     Indication: Psoriatic arthropathy
     Dosage: FREQUENCY : DAILY;?
     Route: 058
     Dates: start: 202102

REACTIONS (5)
  - Device defective [None]
  - Needle issue [None]
  - Device delivery system issue [None]
  - Drug dose omission by device [None]
  - Arthralgia [None]

NARRATIVE: CASE EVENT DATE: 20221225
